FAERS Safety Report 8064124-2 (Version None)
Quarter: 2012Q1

REPORT INFORMATION
  Report Type: 
  Country: None (occurrence: None)
  Receive Date: 20120123
  Receipt Date: 20110526
  Transmission Date: 20120608
  Serious: Yes (Hospitalization)
  Sender: FDA-Public Use
  Company Number: JP-GLAXOSMITHKLINE-B0722962A

PATIENT
  Sex: Female

DRUGS (6)
  1. LAMICTAL [Suspect]
     Indication: CONVULSION
     Dosage: 100MG PER DAY
     Route: 048
     Dates: start: 20110412, end: 20110428
  2. CLONAZEPAM [Concomitant]
     Indication: CONVULSION
     Dosage: 3MG PER DAY
     Route: 048
     Dates: start: 20110111, end: 20110428
  3. VALPROATE SODIUM [Concomitant]
     Indication: CONVULSION
     Dosage: 800MG PER DAY
     Route: 048
     Dates: start: 20100722, end: 20110428
  4. LOXONIN [Concomitant]
     Indication: PAIN
     Route: 048
     Dates: end: 20110428
  5. POLLAKISU [Concomitant]
     Indication: NEUROGENIC BLADDER
     Dosage: 4MG PER DAY
     Route: 048
     Dates: end: 20110428
  6. DIAZEPAM [Concomitant]
     Dosage: 2MG PER DAY
     Route: 048
     Dates: start: 20110111, end: 20110428

REACTIONS (13)
  - ASPARTATE AMINOTRANSFERASE INCREASED [None]
  - GAMMA-GLUTAMYLTRANSFERASE INCREASED [None]
  - BLOOD CALCIUM DECREASED [None]
  - PROTEIN TOTAL DECREASED [None]
  - BLOOD SODIUM DECREASED [None]
  - BLOOD ALKALINE PHOSPHATASE INCREASED [None]
  - BLOOD ALBUMIN DECREASED [None]
  - C-REACTIVE PROTEIN INCREASED [None]
  - BLOOD LACTATE DEHYDROGENASE INCREASED [None]
  - TOXIC EPIDERMAL NECROLYSIS [None]
  - HEPATIC FUNCTION ABNORMAL [None]
  - ALANINE AMINOTRANSFERASE INCREASED [None]
  - PLATELET COUNT DECREASED [None]
